FAERS Safety Report 18143674 (Version 3)
Quarter: 2021Q1

REPORT INFORMATION
  Report Type: Report from Study
  Country: US (occurrence: US)
  Receive Date: 20200812
  Receipt Date: 20210123
  Transmission Date: 20210419
  Serious: Yes (Hospitalization)
  Sender: FDA-Public Use
  Company Number: US-ROCHE-2565803

PATIENT
  Age: 80 Year
  Sex: Female
  Weight: 76.8 kg

DRUGS (4)
  1. PERTUZUMAB. [Suspect]
     Active Substance: PERTUZUMAB
     Indication: BREAST CANCER METASTATIC
     Dosage: TOTAL DOSE ADMINISTERED THIS COURSE: 2100 MG?420MG IV ON DAYS 1 AND 22; 840MG IV C1D1 ONLY?RECENT DO
     Route: 042
     Dates: start: 20191121, end: 20200206
  2. ATEZOLIZUMAB. [Suspect]
     Active Substance: ATEZOLIZUMAB
     Indication: BREAST CANCER METASTATIC
     Dosage: TOTAL DOSE ADMINISTERED THIS COURSE: 2400 MG?1200MG OR PLACEBO IV ON DAYS 1 AND 22?RECENT DOSE OF AT
     Route: 042
     Dates: start: 20200116
  3. PACLITAXEL. [Suspect]
     Active Substance: PACLITAXEL
     Indication: BREAST CANCER METASTATIC
     Dosage: TOTAL DOSE ADMINISTERED THIS COURSE: 1339.2 MG?80MG/M2 IV ON DAYS 1, 8, 15, 22, 29, AND 36?RECENT DO
     Route: 042
     Dates: start: 20191121
  4. TRASTUZUMAB. [Suspect]
     Active Substance: TRASTUZUMAB
     Indication: BREAST CANCER METASTATIC
     Dosage: TOTAL DOSE ADMINISTERED THIS COURSE: 1970.8 MG?6MG/KG IV ON DAYS 1 AND 22; 8MG/KG IV C1D1 ONLY?RECEN
     Route: 042
     Dates: start: 20191121, end: 20200206

REACTIONS (4)
  - Cholecystitis [Recovering/Resolving]
  - Aspartate aminotransferase increased [Recovering/Resolving]
  - Blood alkaline phosphatase increased [Recovering/Resolving]
  - Alanine aminotransferase increased [Recovering/Resolving]

NARRATIVE: CASE EVENT DATE: 20200227
